FAERS Safety Report 23894905 (Version 1)
Quarter: 2024Q2

REPORT INFORMATION
  Report Type: Spontaneous
  Country: US (occurrence: None)
  Receive Date: 20240524
  Receipt Date: 20240524
  Transmission Date: 20240715
  Serious: No
  Sender: FDA-Public Use
  Company Number: US-ROCHE-3343884

PATIENT
  Sex: Female

DRUGS (8)
  1. ACTEMRA [Suspect]
     Active Substance: TOCILIZUMAB
     Indication: Giant cell arteritis
     Route: 058
  2. ACTEMRA [Suspect]
     Active Substance: TOCILIZUMAB
  3. ACTEMRA [Suspect]
     Active Substance: TOCILIZUMAB
     Route: 058
     Dates: start: 202008
  4. ACTEMRA [Suspect]
     Active Substance: TOCILIZUMAB
  5. IBUPROFEN [Concomitant]
     Active Substance: IBUPROFEN
     Indication: Carpal tunnel syndrome
     Route: 048
  6. BAYER LOW DOSE [Concomitant]
     Active Substance: ASPIRIN
     Dosage: YES
     Route: 048
  7. NEXLETOL [Concomitant]
     Active Substance: BEMPEDOIC ACID
  8. JANUVIA [Concomitant]
     Active Substance: SITAGLIPTIN PHOSPHATE
     Indication: Diabetes mellitus
     Route: 048

REACTIONS (8)
  - Device issue [Unknown]
  - Product dose omission issue [Unknown]
  - Device use error [Unknown]
  - Ill-defined disorder [Not Recovered/Not Resolved]
  - Thermal burn [Not Recovered/Not Resolved]
  - Carpal tunnel decompression [Unknown]
  - Product storage error [Unknown]
  - Blood glucose increased [Unknown]

NARRATIVE: CASE EVENT DATE: 20200801
